FAERS Safety Report 12078601 (Version 2)
Quarter: 2017Q1

REPORT INFORMATION
  Report Type: Spontaneous
  Country: US (occurrence: US)
  Receive Date: 20160216
  Receipt Date: 20170110
  Transmission Date: 20170428
  Serious: Yes (Hospitalization, Other)
  Sender: FDA-Public Use
  Company Number: US-STRIDES ARCOLAB LIMITED-2016SP000890

PATIENT

DRUGS (1)
  1. TACROLIMUS. [Suspect]
     Active Substance: TACROLIMUS
     Indication: NEPHROTIC SYNDROME
     Dosage: UNK

REACTIONS (10)
  - Pancytopenia [Recovered/Resolved]
  - Diarrhoea [Recovered/Resolved]
  - Marrow hyperplasia [Recovered/Resolved]
  - Megakaryocytes increased [Recovered/Resolved]
  - Myelofibrosis [Recovered/Resolved]
  - Pyrexia [Recovered/Resolved]
  - Erythropoiesis abnormal [Recovered/Resolved]
  - Abdominal pain [Recovered/Resolved]
  - Platelet morphology abnormal [Recovered/Resolved]
  - Lymphadenopathy [Recovered/Resolved]
